FAERS Safety Report 5352173-4 (Version None)
Quarter: 2007Q2

REPORT INFORMATION
  Report Type: 
  Country: None (occurrence: None)
  Receive Date: 20070607
  Receipt Date: 20070525
  Transmission Date: 20071010
  Serious: Yes (Hospitalization)
  Sender: FDA-Public Use
  Company Number: CLOF-10542

PATIENT
  Age: 71 Year
  Sex: Female

DRUGS (2)
  1. CLOFARABINE. MFR: GENZYME [Suspect]
     Indication: ACUTE MYELOID LEUKAEMIA
     Dosage: 54.6 MG QD X 5 IV
     Route: 042
     Dates: start: 20070302, end: 20070306
  2. CLOFARABINE. MFR: GENZYME [Suspect]
     Indication: ACUTE MYELOID LEUKAEMIA
     Dosage: 36.2 MG QD X 5 IV
     Route: 042
     Dates: start: 20070403, end: 20070407

REACTIONS (1)
  - PANCYTOPENIA [None]
